FAERS Safety Report 4981597-X (Version None)
Quarter: 2006Q2

REPORT INFORMATION
  Report Type: 
  Country: None (occurrence: None)
  Receive Date: 20060421
  Receipt Date: 20060421
  Transmission Date: 20061013
  Serious: Yes (Hospitalization)
  Sender: FDA-Public Use
  Company Number: None

PATIENT
  Age: 75 Year
  Sex: Male

DRUGS (6)
  1. OXALIPLATIN [Suspect]
     Indication: BILE DUCT CANCER
     Dosage: 130 MG/M2 Q 3 WKS
     Dates: start: 20060307
  2. DOCETAXEL [Suspect]
     Indication: BILE DUCT CANCER
     Dosage: 45 MG/M2 Q WK 2 OF 3
     Dates: start: 20060307
  3. DOCETAXEL [Suspect]
     Indication: BILE DUCT CANCER
     Dosage: 45 MG/M2 Q WK 2 OF 3
     Dates: start: 20060327
  4. MORPHINE [Concomitant]
  5. OXYCONTIN [Concomitant]
  6. DILAUDID [Concomitant]

REACTIONS (3)
  - CONFUSIONAL STATE [None]
  - DEHYDRATION [None]
  - DISEASE PROGRESSION [None]
